FAERS Safety Report 17629889 (Version 1)
Quarter: 2020Q2

REPORT INFORMATION
  Report Type: Spontaneous
  Country: US (occurrence: US)
  Receive Date: 20200402
  Receipt Date: 20200402
  Transmission Date: 20200713
  Serious: No
  Sender: FDA-Public Use
  Company Number: None

PATIENT
  Age: 47 Year
  Sex: Female

DRUGS (1)
  1. CAPECITABINE 500MG NOVADOZ PHARMACEUTICALS [Suspect]
     Active Substance: CAPECITABINE
     Indication: ILL-DEFINED DISORDER
     Route: 048
     Dates: start: 20200224

REACTIONS (8)
  - Ear pain [None]
  - Incorrect dose administered [None]
  - Pain [None]
  - Anxiety [None]
  - Dyspnoea [None]
  - Headache [None]
  - Pruritus [None]
  - Wrong schedule [None]

NARRATIVE: CASE EVENT DATE: 20200224
